FAERS Safety Report 16938508 (Version 2)
Quarter: 2020Q3

REPORT INFORMATION
  Report Type: Spontaneous
  Country: US (occurrence: US)
  Receive Date: 20191019
  Receipt Date: 20200924
  Transmission Date: 20201102
  Serious: No
  Sender: FDA-Public Use
  Company Number: US-ASTRAZENECA-2019SF45351

PATIENT

DRUGS (1)
  1. MOVANTIK [Suspect]
     Active Substance: NALOXEGOL OXALATE
     Route: 048

REACTIONS (1)
  - Laboratory test abnormal [Unknown]
